FAERS Safety Report 7800240-5 (Version None)
Quarter: 2011Q4

REPORT INFORMATION
  Report Type: 
  Country: None (occurrence: None)
  Receive Date: 20111006
  Receipt Date: 20110929
  Transmission Date: 20120403
  Serious: Yes (Hospitalization, Other)
  Sender: FDA-Public Use
  Company Number: US-GLAXOSMITHKLINE-A0912748A

PATIENT
  Sex: Female

DRUGS (6)
  1. FOLIC ACID [Concomitant]
  2. PROTONIX [Concomitant]
  3. PROMACTA [Suspect]
     Indication: EVANS SYNDROME
     Dosage: 50MG PER DAY
     Route: 048
     Dates: start: 20101026
  4. IMMUNE GLOBULIN INTRAVENOUS (HUMAN) [Concomitant]
  5. PLATELETS [Concomitant]
  6. NORVASC [Concomitant]

REACTIONS (3)
  - MESENTERIC VEIN THROMBOSIS [None]
  - PORTAL VEIN THROMBOSIS [None]
  - SPLENIC VEIN THROMBOSIS [None]
